FAERS Safety Report 17423960 (Version 4)
Quarter: 2020Q3

REPORT INFORMATION
  Report Type: Not Available
  Country: US (occurrence: US)
  Receive Date: 20200217
  Receipt Date: 20200922
  Transmission Date: 20201102
  Serious: Yes (Hospitalization)
  Sender: FDA-Public Use
  Company Number: US-NEUROCRINE BIOSCIENCES INC.-2020NBI00437

PATIENT
  Age: 56 Year
  Sex: Female

DRUGS (26)
  1. INGREZZA [Suspect]
     Active Substance: VALBENAZINE
     Indication: TARDIVE DYSKINESIA
     Route: 048
     Dates: start: 20190814, end: 20190821
  2. LEVEMIR [Concomitant]
     Active Substance: INSULIN DETEMIR
  3. TYLENOL [Concomitant]
     Active Substance: ACETAMINOPHEN
  4. CARVEDILOL. [Concomitant]
     Active Substance: CARVEDILOL
  5. LISINOPRIL. [Concomitant]
     Active Substance: LISINOPRIL
  6. ALLOPURINOL. [Concomitant]
     Active Substance: ALLOPURINOL
  7. DICYCLOMINE [Concomitant]
     Active Substance: DICYCLOMINE HYDROCHLORIDE
  8. VITAMIN B COMPLEX [Concomitant]
     Active Substance: CYANOCOBALAMIN\DEXPANTHENOL\NIACINAMIDE\PYRIDOXINE HYDROCHLORIDE\RIBOFLAVIN 5^-PHOSPHATE SODIUM\THIAMINE HYDROCHLORIDE\VITAMIN B COMPLEX
  9. ZOFRAN [Concomitant]
     Active Substance: ONDANSETRON HYDROCHLORIDE
  10. INSULIN [Concomitant]
     Active Substance: INSULIN NOS
  11. RENVELA [Concomitant]
     Active Substance: SEVELAMER CARBONATE
  12. CITALOPRAM [Concomitant]
     Active Substance: CITALOPRAM HYDROBROMIDE
  13. CALCITRIOL. [Concomitant]
     Active Substance: CALCITRIOL
  14. INGREZZA [Suspect]
     Active Substance: VALBENAZINE
     Route: 048
     Dates: start: 20190822, end: 20200820
  15. LYRICA [Concomitant]
     Active Substance: PREGABALIN
  16. CALCIUM [Concomitant]
     Active Substance: CALCIUM
  17. CARBIDOPA?LEVODOPA [Suspect]
     Active Substance: CARBIDOPA\LEVODOPA
     Indication: PRODUCT USED FOR UNKNOWN INDICATION
  18. AMLODIPINE [Concomitant]
     Active Substance: AMLODIPINE BESYLATE
  19. ROSUVASTATIN. [Concomitant]
     Active Substance: ROSUVASTATIN
  20. AMITRIPTYLINE [Concomitant]
     Active Substance: AMITRIPTYLINE
  21. VENTOLIN (PROAIR) [Concomitant]
  22. BACTRIM [Concomitant]
     Active Substance: SULFAMETHOXAZOLE\TRIMETHOPRIM
  23. CLONIDINE. [Concomitant]
     Active Substance: CLONIDINE
  24. PRASUGREL. [Concomitant]
     Active Substance: PRASUGREL
  25. GENTAMICIN. [Concomitant]
     Active Substance: GENTAMICIN
  26. NOVOLOG [Concomitant]
     Active Substance: INSULIN ASPART

REACTIONS (9)
  - Asthenia [Unknown]
  - Renal impairment [Unknown]
  - Cystitis [Recovered/Resolved]
  - Somnolence [Unknown]
  - Fungal cystitis [Unknown]
  - Confusional state [Unknown]
  - Accidental overdose [Unknown]
  - Memory impairment [Unknown]
  - Urinary tract infection [Unknown]

NARRATIVE: CASE EVENT DATE: 20191028
